FAERS Safety Report 4978849-6 (Version None)
Quarter: 2006Q2

REPORT INFORMATION
  Report Type: 
  Country: None (occurrence: None)
  Receive Date: 20060417
  Receipt Date: 20060403
  Transmission Date: 20061013
  Serious: Yes (Hospitalization)
  Sender: FDA-Public Use
  Company Number: B0420086A

PATIENT
  Age: 45 Year
  Sex: Male

DRUGS (3)
  1. LITHIUM CARBONATE [Suspect]
     Indication: BIPOLAR DISORDER
     Dosage: 300 MG / TWICE PER DAY
  2. THYROXINE SODIUM [Concomitant]
  3. CARBAMAZEPINE [Concomitant]

REACTIONS (3)
  - AUTOIMMUNE THYROIDITIS [None]
  - HYPOTHYROIDISM [None]
  - PAPILLARY THYROID CANCER [None]
